FAERS Safety Report 5498303-5 (Version None)
Quarter: 2007Q4

REPORT INFORMATION
  Report Type: 
  Country: None (occurrence: None)
  Receive Date: 20071025
  Receipt Date: 20070427
  Transmission Date: 20080405
  Serious: No
  Sender: FDA-Public Use
  Company Number: A0649068A

PATIENT
  Age: 59 Year
  Sex: Female

DRUGS (6)
  1. ADVAIR DISKUS 100/50 [Suspect]
     Dosage: 1PUFF TWICE PER DAY
     Route: 055
     Dates: start: 20070327, end: 20070424
  2. ALBUTEROL [Concomitant]
  3. BLOOD PRESSURE MEDICATION [Concomitant]
  4. MORPHINE [Concomitant]
  5. HORMONES [Concomitant]
  6. UNKNOWN MEDICATION [Concomitant]

REACTIONS (4)
  - EAR PAIN [None]
  - PAIN IN JAW [None]
  - PHARYNGEAL ERYTHEMA [None]
  - PHARYNGOLARYNGEAL PAIN [None]
